FAERS Safety Report 5985029-4 (Version None)
Quarter: 2008Q4

REPORT INFORMATION
  Report Type: 
  Country: None (occurrence: None)
  Receive Date: 20081208
  Receipt Date: 20080708
  Transmission Date: 20090506
  Serious: Yes (Other)
  Sender: FDA-Public Use
  Company Number: US-AMGEN-QUU288449

PATIENT
  Sex: Female
  Weight: 69.9 kg

DRUGS (4)
  1. ENBREL [Suspect]
     Indication: RHEUMATOID ARTHRITIS
     Route: 058
     Dates: start: 20070205
  2. IBUPROFEN TABLETS [Concomitant]
  3. ASPIRIN [Concomitant]
  4. XANAX [Concomitant]

REACTIONS (3)
  - ANXIETY [None]
  - DEPRESSION [None]
  - RHEUMATOID ARTHRITIS [None]
